FAERS Safety Report 11176193 (Version 2)
Quarter: 2015Q2

REPORT INFORMATION
  Report Type: Report from Study
  Country: US (occurrence: US)
  Receive Date: 20150609
  Receipt Date: 20150622
  Transmission Date: 20150821
  Serious: Yes (Other)
  Sender: FDA-Public Use
  Company Number: US-BRISTOL-MYERS SQUIBB COMPANY-BMS-2015-033147

PATIENT

DRUGS (2)
  1. PLACEBO [Suspect]
     Active Substance: UNSPECIFIED INGREDIENT
     Indication: SYSTEMIC SCLEROSIS
     Dosage: 125 MG, QWK
     Route: 058
     Dates: start: 20140212
  2. BLINDED ABATACEPT [Suspect]
     Active Substance: ABATACEPT
     Indication: SYSTEMIC SCLEROSIS
     Dosage: 125 MG, QWK
     Route: 058
     Dates: start: 20140212

REACTIONS (2)
  - Gastric antral vascular ectasia [Unknown]
  - Anaemia [Unknown]
